FAERS Safety Report 13066806 (Version 1)
Quarter: 2016Q4

REPORT INFORMATION
  Report Type: Spontaneous
  Country: TR (occurrence: TR)
  Receive Date: 20161227
  Receipt Date: 20161227
  Transmission Date: 20170207
  Serious: Yes (Congenital Anomaly)
  Sender: FDA-Public Use
  Company Number: TR-SA-2016SA229447

PATIENT
  Age: 3 Month
  Sex: Female
  Weight: 3.86 kg

DRUGS (5)
  1. DODEX [Concomitant]
     Active Substance: CYANOCOBALAMIN
     Dates: start: 20160510
  2. LANTUS SOLOSTAR [Suspect]
     Active Substance: INSULIN GLARGINE
     Indication: MATERNAL EXPOSURE TIMING UNSPECIFIED
     Dosage: ROUTE-SC TO MOTHER,VIA MOTHER TO BABY
     Route: 064
     Dates: start: 20160516
  3. EUTHYROX [Concomitant]
     Active Substance: LEVOTHYROXINE SODIUM
     Indication: THYROID DISORDER
     Dates: start: 20160510
  4. FERRO ^SANOL^ [Concomitant]
     Indication: ANAEMIA
     Dates: start: 20160510
  5. SOLOSTAR [Concomitant]
     Active Substance: DEVICE
     Dates: start: 20160516

REACTIONS (1)
  - Cardiac valve disease [Not Recovered/Not Resolved]

NARRATIVE: CASE EVENT DATE: 20160905
